FAERS Safety Report 7101496-7 (Version None)
Quarter: 2010Q4

REPORT INFORMATION
  Report Type: 
  Country: None (occurrence: None)
  Receive Date: 20101108
  Receipt Date: 20101027
  Transmission Date: 20110411
  Serious: Yes (Other)
  Sender: FDA-Public Use
  Company Number: AXC-2010-000276

PATIENT
  Age: 56 Year
  Sex: Male

DRUGS (1)
  1. MESALAMINE [Suspect]
     Indication: OCCUPATIONAL EXPOSURE TO DRUG

REACTIONS (5)
  - ASTHMA [None]
  - COUGH [None]
  - DYSPNOEA [None]
  - PULMONARY FUNCTION CHALLENGE TEST ABNORMAL [None]
  - WHEEZING [None]
